FAERS Safety Report 7726514-4 (Version None)
Quarter: 2011Q3

REPORT INFORMATION
  Report Type: 
  Country: None (occurrence: None)
  Receive Date: 20110902
  Receipt Date: 20110823
  Transmission Date: 20111222
  Serious: Yes (Other)
  Sender: FDA-Public Use
  Company Number: PHHY2011IE77457

PATIENT
  Age: 35 Year
  Sex: Male

DRUGS (1)
  1. CLOZAPINE [Suspect]
     Indication: SCHIZOPHRENIA
     Dosage: UNK UKN, UNK
     Route: 065

REACTIONS (3)
  - TACHYCARDIA [None]
  - HYPERTENSION [None]
  - LEFT VENTRICULAR HYPERTROPHY [None]
